FAERS Safety Report 7153353-8 (Version None)
Quarter: 2010Q4

REPORT INFORMATION
  Report Type: 
  Country: None (occurrence: None)
  Receive Date: 20101213
  Receipt Date: 20101202
  Transmission Date: 20110411
  Serious: Yes (Hospitalization)
  Sender: FDA-Public Use
  Company Number: US-ROCHE-747379

PATIENT
  Sex: Female
  Weight: 53.6 kg

DRUGS (3)
  1. CAPECITABINE [Suspect]
     Indication: BREAST CANCER
     Route: 048
  2. TRASTUZUMAB-MCC-DM1 [Suspect]
     Indication: BREAST CANCER
     Dosage: 3.6 UNK, Q21D
     Route: 042
     Dates: start: 20101129, end: 20101129
  3. LAPATINIB [Suspect]
     Indication: BREAST CANCER
     Route: 048

REACTIONS (1)
  - PAIN [None]
